FAERS Safety Report 19714464 (Version 1)
Quarter: 2021Q3

REPORT INFORMATION
  Report Type: Spontaneous
  Country: DE (occurrence: DE)
  Receive Date: 20210818
  Receipt Date: 20210818
  Transmission Date: 20211014
  Serious: Yes (Hospitalization)
  Sender: FDA-Public Use
  Company Number: DE-SUN PHARMACEUTICAL INDUSTRIES LTD-2021RR-308080

PATIENT
  Age: 78 Year
  Sex: Female
  Weight: 63 kg

DRUGS (7)
  1. COLECALCIFEROL (VITAMIN D) [Concomitant]
     Active Substance: CHOLECALCIFEROL
     Indication: PRODUCT USED FOR UNKNOWN INDICATION
     Dosage: 20,000 IU, ACCORDING TO THE SCHEME, CAPSULES
     Route: 048
  2. ESTRIOL [Concomitant]
     Active Substance: ESTRIOL
     Indication: PRODUCT USED FOR UNKNOWN INDICATION
     Dosage: 0.5 MG, ACCORDING TO THE SCHEME, SUPPOSITORIES ()
     Route: 067
  3. ELIQUIS [Suspect]
     Active Substance: APIXABAN
     Indication: PRODUCT USED FOR UNKNOWN INDICATION
     Dosage: 2.5 MG, 1?0?1?0, TABLETTEN ()
     Route: 048
  4. PREGABALIN. [Suspect]
     Active Substance: PREGABALIN
     Indication: PRODUCT USED FOR UNKNOWN INDICATION
     Dosage: 50 MG, 1?0?1?0, CAPSULE ()
     Route: 048
  5. TORASEMID [Suspect]
     Active Substance: TORSEMIDE
     Indication: PRODUCT USED FOR UNKNOWN INDICATION
     Dosage: 5 MG, 1?0?0?0, TABLETTEN ()
     Route: 048
  6. METAMIZOL [Suspect]
     Active Substance: METAMIZOLE SODIUM
     Indication: PRODUCT USED FOR UNKNOWN INDICATION
     Dosage: 500 MG, 1?1?1?0, TABLETTEN ()
     Route: 048
  7. PANTOPRAZOL [Concomitant]
     Active Substance: PANTOPRAZOLE SODIUM
     Indication: PRODUCT USED FOR UNKNOWN INDICATION
     Dosage: 40 MG, 1?0?0?0, RETARD?TABLETTEN ()
     Route: 048

REACTIONS (10)
  - Dyspnoea [Unknown]
  - Decreased appetite [Unknown]
  - Hypothermia [Unknown]
  - Tachypnoea [Unknown]
  - Thirst decreased [Unknown]
  - Haematuria [Unknown]
  - Dysuria [Unknown]
  - Hypotension [Unknown]
  - General physical health deterioration [Unknown]
  - Dysphagia [Unknown]
